FAERS Safety Report 8934228 (Version 2)
Quarter: 2012Q4

REPORT INFORMATION
  Report Type: 
  Country: JP (occurrence: JP)
  Receive Date: 20121129
  Receipt Date: 20121211
  Transmission Date: 20130627
  Serious: Yes (Hospitalization, Other)
  Sender: FDA-Public Use
  Company Number: JP-BAXTER-2012BAX024891

PATIENT
  Sex: Female

DRUGS (1)
  1. DIANEAL-N PD-2 1.5% [Suspect]
     Indication: RENAL FAILURE CHRONIC
     Route: 033

REACTIONS (2)
  - Wound haemorrhage [Recovered/Resolved]
  - Device related infection [Recovered/Resolved]
